FAERS Safety Report 5934721-6 (Version None)
Quarter: 2008Q4

REPORT INFORMATION
  Report Type: 
  Country: None (occurrence: None)
  Receive Date: 20081010
  Receipt Date: 20080523
  Transmission Date: 20090506
  Serious: Yes (Death)
  Sender: FDA-Public Use
  Company Number: 2008SP009784

PATIENT

DRUGS (4)
  1. TEMODAR [Suspect]
     Indication: DRUG USE FOR UNKNOWN INDICATION
     Dosage: 5 MG PO 20 MG PO 100 MG PO
     Route: 048
  2. TEMODAR [Suspect]
  3. TEMODAR [Suspect]
  4. TEMODAR [Suspect]

REACTIONS (1)
  - DISEASE PROGRESSION [None]
